FAERS Safety Report 5005096-4 (Version None)
Quarter: 2006Q2

REPORT INFORMATION
  Report Type: 
  Country: None (occurrence: None)
  Receive Date: 20060512
  Receipt Date: 20060424
  Transmission Date: 20061013
  Serious: Yes (Disabling)
  Sender: FDA-Public Use
  Company Number: 2006057308

PATIENT
  Age: 3 Month
  Sex: Female
  Weight: 2.6 kg

DRUGS (3)
  1. VIRACEPT [Suspect]
     Indication: HIV INFECTION
     Dates: start: 20021101, end: 20030114
  2. COMBIVIR [Suspect]
     Indication: HIV INFECTION
     Dosage: ORAL
     Route: 048
     Dates: start: 20021101, end: 20030114
  3. RETROVIR [Suspect]
     Indication: HIV INFECTION
     Dosage: 200 MG/20 ML INTRAVENOUS
     Route: 042
     Dates: start: 20030114, end: 20030114

REACTIONS (9)
  - CAESAREAN SECTION [None]
  - CONVULSION [None]
  - DRUG EXPOSURE DURING PREGNANCY [None]
  - EYE MOVEMENT DISORDER [None]
  - HYPERTONIA [None]
  - NUCLEAR MAGNETIC RESONANCE IMAGING BRAIN ABNORMAL [None]
  - PSYCHOMOTOR RETARDATION [None]
  - RETINOGRAM ABNORMAL [None]
  - VISUAL DISTURBANCE [None]
